FAERS Safety Report 6137992-9 (Version None)
Quarter: 2009Q1

REPORT INFORMATION
  Report Type: 
  Country: None (occurrence: None)
  Receive Date: 20090327
  Receipt Date: 20090327
  Transmission Date: 20090719
  Serious: No
  Sender: FDA-Public Use
  Company Number: None

PATIENT
  Sex: Female
  Weight: 63.5036 kg

DRUGS (1)
  1. TRAZODONE HCL [Suspect]
     Indication: INSOMNIA
     Dosage: 50 MG 1X 1 DOSE

REACTIONS (8)
  - AGITATION [None]
  - DRY MOUTH [None]
  - HALLUCINATION [None]
  - HYPERVIGILANCE [None]
  - INSOMNIA [None]
  - MUSCLE TIGHTNESS [None]
  - OCULAR HYPERAEMIA [None]
  - RESTLESSNESS [None]
